FAERS Safety Report 7557121-4 (Version None)
Quarter: 2011Q2

REPORT INFORMATION
  Report Type: 
  Country: None (occurrence: None)
  Receive Date: 20110620
  Receipt Date: 20110608
  Transmission Date: 20111010
  Serious: Yes (Other)
  Sender: FDA-Public Use
  Company Number: US-ROCHE-735842

PATIENT
  Sex: Female
  Weight: 61.2 kg

DRUGS (3)
  1. ACCUTANE [Suspect]
     Indication: ACNE
     Route: 048
     Dates: start: 19940601, end: 19941122
  2. ASPIRIN [Concomitant]
     Indication: HEADACHE
  3. ACCUTANE [Suspect]
     Route: 048
     Dates: start: 20040701, end: 20041101

REACTIONS (7)
  - POLYP [None]
  - INFLAMMATORY BOWEL DISEASE [None]
  - DEPRESSION [None]
  - CROHN'S DISEASE [None]
  - GASTROINTESTINAL INJURY [None]
  - LIP DRY [None]
  - HAEMORRHOIDS [None]
